FAERS Safety Report 8108554-9 (Version None)
Quarter: 2012Q1

REPORT INFORMATION
  Report Type: 
  Country: None (occurrence: None)
  Receive Date: 20120202
  Receipt Date: 20120131
  Transmission Date: 20120608
  Serious: Yes (Death)
  Sender: FDA-Public Use
  Company Number: PHHY2011CN113620

PATIENT

DRUGS (1)
  1. TEGRETOL [Suspect]
     Dosage: 300 MG, UNK
     Route: 015

REACTIONS (1)
  - PULMONARY HAEMORRHAGE [None]
